FAERS Safety Report 5176702-9 (Version None)
Quarter: 2006Q4

REPORT INFORMATION
  Report Type: 
  Country: None (occurrence: None)
  Receive Date: 20061213
  Receipt Date: 20061213
  Transmission Date: 20070319
  Serious: Yes (Other)
  Sender: FDA-Public Use
  Company Number: None

PATIENT
  Sex: Male
  Weight: 100 kg

DRUGS (10)
  1. DEFIBROTIDE 200 MG/ML AMPULE GENTIUM PHARM -ITALY [Suspect]
     Indication: VENOOCCLUSIVE DISEASE
     Dosage: 1000MG Q6HRS IV
     Route: 042
     Dates: start: 20061103, end: 20061106
  2. ACETYLCYSTEINE [Concomitant]
  3. ACYCLOVIR [Concomitant]
  4. CASPOFUNGIN [Concomitant]
  5. FILGRASTIM [Concomitant]
  6. LEVOFLOXACIN [Concomitant]
  7. MEROPEREM [Concomitant]
  8. METHYLPREDNISOLONE 16MG TAB [Concomitant]
  9. TACROLIMUS [Concomitant]
  10. URSODIOL [Concomitant]

REACTIONS (11)
  - ACIDOSIS [None]
  - BLOOD BILIRUBIN INCREASED [None]
  - BLOOD PRESSURE DECREASED [None]
  - CARDIAC ENZYMES INCREASED [None]
  - CARDIO-RESPIRATORY ARREST [None]
  - DILATATION VENTRICULAR [None]
  - GENERAL PHYSICAL HEALTH DETERIORATION [None]
  - HAEMOGLOBIN DECREASED [None]
  - HAEMOTHORAX [None]
  - INFUSION RELATED REACTION [None]
  - RENAL FAILURE [None]
